FAERS Safety Report 25729805 (Version 1)
Quarter: 2025Q3

REPORT INFORMATION
  Report Type: Spontaneous
  Country: US (occurrence: US)
  Receive Date: 20250827
  Receipt Date: 20250827
  Transmission Date: 20251020
  Serious: No
  Sender: UCB
  Company Number: US-UCBSA-2025019631

PATIENT
  Sex: Male

DRUGS (2)
  1. FINTEPLA [Suspect]
     Active Substance: FENFLURAMINE
     Indication: Product used for unknown indication
     Dates: start: 2023
  2. FINTEPLA [Suspect]
     Active Substance: FENFLURAMINE
     Dates: start: 202502

REACTIONS (1)
  - Oedema peripheral [Unknown]
